FAERS Safety Report 8216603-2 (Version None)
Quarter: 2012Q1

REPORT INFORMATION
  Report Type: 
  Country: None (occurrence: None)
  Receive Date: 20120316
  Receipt Date: 20120312
  Transmission Date: 20120608
  Serious: Yes (Hospitalization)
  Sender: FDA-Public Use
  Company Number: CHPA2012US004654

PATIENT
  Age: 73 Year
  Sex: Female

DRUGS (1)
  1. EXCEDRIN PM TABLETS [Suspect]
     Indication: INSOMNIA
     Dosage: 1 DF, QD
     Route: 048

REACTIONS (4)
  - UNDERDOSE [None]
  - MYOCARDIAL INFARCTION [None]
  - CORONARY ARTERY OCCLUSION [None]
  - INCORRECT DRUG ADMINISTRATION DURATION [None]
